FAERS Safety Report 8505911-3 (Version None)
Quarter: 2012Q3

REPORT INFORMATION
  Report Type: 
  Country: None (occurrence: None)
  Receive Date: 20120712
  Receipt Date: 20120706
  Transmission Date: 20120928
  Serious: Yes (Hospitalization)
  Sender: FDA-Public Use
  Company Number: US-ASTRAZENECA-2012SE46216

PATIENT
  Age: 68 Year
  Sex: Female
  Weight: 90.7 kg

DRUGS (3)
  1. THYROID PILLS [Concomitant]
  2. BRILINTA [Suspect]
     Indication: ARTERIAL OCCLUSIVE DISEASE
     Route: 048
  3. ASPIRIN [Concomitant]

REACTIONS (3)
  - DYSPNOEA [None]
  - OFF LABEL USE [None]
  - HAEMORRHAGE [None]
